FAERS Safety Report 13289951 (Version 1)
Quarter: 2017Q1

REPORT INFORMATION
  Report Type: Spontaneous
  Country: US (occurrence: US)
  Receive Date: 20170302
  Receipt Date: 20170302
  Transmission Date: 20170428
  Serious: No
  Sender: FDA-Public Use
  Company Number: US-DRREDDYS-USA/USA/16/0084879

PATIENT
  Sex: Female

DRUGS (1)
  1. SERNIVO [Suspect]
     Active Substance: BETAMETHASONE DIPROPIONATE
     Indication: ECZEMA
     Dosage: 0.05%, 120 ML
     Route: 061
     Dates: start: 20161109

REACTIONS (2)
  - Drug administered to patient of inappropriate age [Unknown]
  - No adverse event [Unknown]
